FAERS Safety Report 11162741 (Version 1)
Quarter: 2015Q2

REPORT INFORMATION
  Report Type: Spontaneous
  Country: US (occurrence: US)
  Receive Date: 20150604
  Receipt Date: 20150604
  Transmission Date: 20150821
  Serious: No
  Sender: FDA-Public Use
  Company Number: US-SA-2015SA011363

PATIENT
  Sex: Female

DRUGS (2)
  1. LANTUS SOLOSTAR [Suspect]
     Active Substance: INSULIN GLARGINE
     Indication: ACCIDENTAL EXPOSURE TO PRODUCT
     Route: 065
     Dates: start: 201501, end: 201501
  2. SOLOSTAR [Concomitant]
     Active Substance: DEVICE
     Indication: ACCIDENTAL EXPOSURE TO PRODUCT
     Dates: start: 201501, end: 201501

REACTIONS (1)
  - Injury associated with device [Unknown]

NARRATIVE: CASE EVENT DATE: 201501
